FAERS Safety Report 5519643-7 (Version None)
Quarter: 2007Q4

REPORT INFORMATION
  Report Type: 
  Country: None (occurrence: None)
  Receive Date: 20071114
  Receipt Date: 20071106
  Transmission Date: 20080405
  Serious: Yes (Other)
  Sender: FDA-Public Use
  Company Number: 2007SP018938

PATIENT
  Age: 59 Year
  Sex: Female

DRUGS (5)
  1. NASONEX [Suspect]
     Indication: RHINITIS ALLERGIC
     Dosage: 2 DF;QD;NAS
     Route: 045
     Dates: start: 20020401, end: 20070918
  2. ZYRTEC [Concomitant]
  3. SYNTHROID [Concomitant]
  4. VANCENASE [Concomitant]
  5. NASACORT [Concomitant]

REACTIONS (2)
  - CHORIORETINOPATHY [None]
  - INTRAOCULAR PRESSURE INCREASED [None]
